FAERS Safety Report 4649132-3 (Version None)
Quarter: 2005Q2

REPORT INFORMATION
  Report Type: 
  Country: None (occurrence: None)
  Receive Date: 20050429
  Receipt Date: 20050422
  Transmission Date: 20051028
  Serious: Yes (Hospitalization)
  Sender: FDA-Public Use
  Company Number: FR-GLAXOSMITHKLINE-B0379341A

PATIENT
  Age: 73 Year
  Sex: Female

DRUGS (11)
  1. AUGMENTIN '125' [Suspect]
     Dosage: 3G PER DAY
     Route: 042
     Dates: start: 20050212, end: 20050221
  2. ZYPREXA [Suspect]
     Dosage: 1UNIT PER DAY
     Route: 048
  3. TRANXENE [Suspect]
     Dosage: 25MG TWICE PER DAY
     Route: 048
  4. ANAFRANIL CAP [Suspect]
     Dosage: 75MG PER DAY
     Route: 048
  5. OFLOCET [Suspect]
     Dosage: 2G PER DAY
     Route: 042
     Dates: start: 20050212, end: 20050221
  6. PRAVASTATIN [Suspect]
     Dosage: 40MG PER DAY
     Route: 048
     Dates: end: 20050216
  7. VASTAREL [Concomitant]
     Dosage: 35MG TWICE PER DAY
     Route: 065
  8. NITRODERM [Concomitant]
     Route: 065
  9. SERESTA [Concomitant]
     Dosage: 50MG PER DAY
     Route: 065
  10. TERCIAN [Concomitant]
     Dosage: 25MG TWICE PER DAY
     Route: 065
  11. KARDEGIC [Concomitant]
     Dosage: 75MG PER DAY
     Route: 065

REACTIONS (4)
  - ALANINE AMINOTRANSFERASE INCREASED [None]
  - ASPARTATE AMINOTRANSFERASE INCREASED [None]
  - BLOOD ALKALINE PHOSPHATASE INCREASED [None]
  - GAMMA-GLUTAMYLTRANSFERASE INCREASED [None]
